FAERS Safety Report 10258971 (Version 3)
Quarter: 2014Q3

REPORT INFORMATION
  Report Type: Spontaneous
  Country: DE (occurrence: DE)
  Receive Date: 20140625
  Receipt Date: 20140723
  Transmission Date: 20150326
  Serious: Yes (Hospitalization)
  Sender: FDA-Public Use
  Company Number: DE-EISAI INC-E2007-01719-SPO-DE

PATIENT
  Age: 61 Year
  Sex: Female
  Weight: 70 kg

DRUGS (4)
  1. FYCOMPA [Interacting]
     Active Substance: PERAMPANEL
     Dosage: UNKNOWN - UPTITRATION
     Route: 048
  2. FYCOMPA [Interacting]
     Active Substance: PERAMPANEL
     Route: 048
     Dates: start: 20140321, end: 20140408
  3. VIMPAT [Interacting]
     Active Substance: LACOSAMIDE
     Indication: EPILEPSY
     Dosage: 400 MG
     Route: 048
  4. FYCOMPA [Suspect]
     Active Substance: PERAMPANEL
     Indication: EPILEPSY
     Route: 048

REACTIONS (4)
  - Drug withdrawal convulsions [Recovering/Resolving]
  - Ataxia [Recovering/Resolving]
  - Drug interaction [Recovering/Resolving]
  - Dysarthria [Recovering/Resolving]

NARRATIVE: CASE EVENT DATE: 20140408
